FAERS Safety Report 16014983 (Version 1)
Quarter: 2019Q1

REPORT INFORMATION
  Report Type: Report from Study
  Country: None (occurrence: BR)
  Receive Date: 20190227
  Receipt Date: 20190227
  Transmission Date: 20190418
  Serious: Yes (Other)
  Sender: FDA-Public Use
  Company Number: BR-ABBVIE-19K-020-2676483-00

PATIENT
  Sex: Female
  Weight: 64 kg

DRUGS (2)
  1. ISONIAZID. [Suspect]
     Active Substance: ISONIAZID
     Indication: TUBERCULOSIS
     Route: 065
     Dates: start: 20190109
  2. HUMIRA [Suspect]
     Active Substance: ADALIMUMAB
     Indication: ANKYLOSING SPONDYLITIS
     Route: 058
     Dates: start: 20151202, end: 201812

REACTIONS (9)
  - Neutropenia [Unknown]
  - Latent tuberculosis [Unknown]
  - Hepatic mass [Unknown]
  - Feeling hot [Recovering/Resolving]
  - Paraesthesia [Recovering/Resolving]
  - Deafness [Unknown]
  - Hepatic steatosis [Unknown]
  - Diverticulitis [Unknown]
  - Onychoclasis [Unknown]

NARRATIVE: CASE EVENT DATE: 2017
